FAERS Safety Report 6821178-6 (Version None)
Quarter: 2010Q3

REPORT INFORMATION
  Report Type: 
  Country: None (occurrence: None)
  Receive Date: 20100707
  Receipt Date: 20080226
  Transmission Date: 20110219
  Serious: No
  Sender: FDA-Public Use
  Company Number: US-PFIZER INC-2008019234

PATIENT
  Age: 29 Year
  Sex: Female
  Weight: 81.19 kg

DRUGS (7)
  1. SERTRALINE [Suspect]
     Indication: ANXIETY
     Dates: start: 20080104
  2. SERTRALINE [Suspect]
     Indication: PANIC DISORDER
  3. SERTRALINE [Suspect]
     Indication: DEPRESSION
  4. WELLBUTRIN [Concomitant]
  5. CLONAZEPAM [Concomitant]
  6. METOPROLOL [Concomitant]
  7. KARIVA [Concomitant]
     Indication: CONTRACEPTION

REACTIONS (4)
  - JOINT STIFFNESS [None]
  - MUSCLE FATIGUE [None]
  - MUSCLE TIGHTNESS [None]
  - YAWNING [None]
